FAERS Safety Report 23073416 (Version 5)
Quarter: 2024Q2

REPORT INFORMATION
  Report Type: Spontaneous
  Country: DE (occurrence: DE)
  Receive Date: 20231017
  Receipt Date: 20240430
  Transmission Date: 20240716
  Serious: Yes (Hospitalization, Other)
  Sender: FDA-Public Use
  Company Number: None

PATIENT
  Sex: Female

DRUGS (41)
  1. CIMZIA [Suspect]
     Active Substance: CERTOLIZUMAB PEGOL
     Indication: Product used for unknown indication
     Dosage: 200 MG
     Dates: start: 201401, end: 201407
  2. ADALIMUMAB [Suspect]
     Active Substance: ADALIMUMAB\ISOPROPYL ALCOHOL
     Indication: Product used for unknown indication
     Dosage: 40 MG, Q2W
     Dates: start: 20220925
  3. HYRIMOZ [Suspect]
     Active Substance: ADALIMUMAB-ADAZ
     Indication: Rheumatoid arthritis
     Dosage: 40 MG, Q2W
     Dates: start: 20220925
  4. OLUMIANT [Suspect]
     Active Substance: BARICITINIB
     Indication: Product used for unknown indication
     Dosage: 4 MG, QD (1X A DAY)
     Dates: start: 201801, end: 20220921
  5. MABTHERA [Suspect]
     Active Substance: RITUXIMAB
     Indication: Product used for unknown indication
     Dosage: 1000 UNK
     Dates: start: 201407
  6. MABTHERA [Suspect]
     Active Substance: RITUXIMAB
     Dosage: 1000 UNK
     Dates: start: 201502
  7. MABTHERA [Suspect]
     Active Substance: RITUXIMAB
     Dosage: 1000 UNK
     Dates: start: 201508
  8. TOCILIZUMAB [Suspect]
     Active Substance: TOCILIZUMAB
     Indication: Product used for unknown indication
     Dosage: 162 MILLIGRAM
     Dates: start: 201710, end: 201801
  9. METHOTREXATE [Suspect]
     Active Substance: METHOTREXATE
     Indication: Product used for unknown indication
     Dosage: 10 MG
  10. METHOTREXATE [Suspect]
     Active Substance: METHOTREXATE
     Dosage: 5 MG
  11. METHOTREXATE [Suspect]
     Active Substance: METHOTREXATE
     Dosage: 10 MG
  12. METHOTREXATE [Suspect]
     Active Substance: METHOTREXATE
     Dosage: 10 MG
  13. METHOTREXATE [Suspect]
     Active Substance: METHOTREXATE
     Dosage: 10 MG
  14. METHOTREXATE [Suspect]
     Active Substance: METHOTREXATE
     Dosage: 10 MG
  15. METHOTREXATE [Suspect]
     Active Substance: METHOTREXATE
     Dosage: 5 MG
  16. METHOTREXATE [Suspect]
     Active Substance: METHOTREXATE
     Dosage: 10 MG, QW
     Dates: start: 202211
  17. METHOTREXATE [Suspect]
     Active Substance: METHOTREXATE
     Dosage: 10 MG
  18. METHOTREXATE [Suspect]
     Active Substance: METHOTREXATE
     Dosage: 10 MG
  19. METHOTREXATE [Suspect]
     Active Substance: METHOTREXATE
     Dosage: 10 MG
  20. METHOTREXATE [Suspect]
     Active Substance: METHOTREXATE
     Dosage: 5 MG
  21. METHOTREXATE [Suspect]
     Active Substance: METHOTREXATE
     Dosage: 5 MG
  22. METHOTREXATE [Suspect]
     Active Substance: METHOTREXATE
     Dosage: 10 MG
  23. METHOTREXATE [Suspect]
     Active Substance: METHOTREXATE
     Dosage: 10 MG
  24. METHOTREXATE [Suspect]
     Active Substance: METHOTREXATE
     Dosage: 10 MG
  25. METHOTREXATE [Suspect]
     Active Substance: METHOTREXATE
     Dosage: 5 MG
  26. METHOTREXATE [Suspect]
     Active Substance: METHOTREXATE
     Dosage: 10 MG
  27. METHOTREXATE [Suspect]
     Active Substance: METHOTREXATE
     Dosage: 10 MG
  28. METHOTREXATE [Suspect]
     Active Substance: METHOTREXATE
     Dosage: 10 MG
  29. ORENCIA [Suspect]
     Active Substance: ABATACEPT
     Indication: Product used for unknown indication
     Dosage: 125 MILLIGRAM
     Dates: start: 201601, end: 201710
  30. PREDNISOLONE [Concomitant]
     Active Substance: PREDNISOLONE
     Indication: Product used for unknown indication
     Dosage: 1 MILLIGRAM, ONCE DAILY (QD) (1X/D)
  31. VICTOZA [Concomitant]
     Active Substance: LIRAGLUTIDE
     Indication: Product used for unknown indication
     Dosage: UNK, QD (18MG/3ML)
  32. PANTOPRAZOLE [Concomitant]
     Active Substance: PANTOPRAZOLE
     Indication: Product used for unknown indication
     Dosage: 400 MG, QD (1X/D)
  33. IBUPROFEN [Concomitant]
     Active Substance: IBUPROFEN
     Indication: Product used for unknown indication
     Dosage: 400 MG (B.B)
  34. EFEROX [Concomitant]
     Active Substance: LEVOTHYROXINE SODIUM
     Indication: Product used for unknown indication
     Dosage: 100 UG, QD (1X/D)
  35. MOVICOL [Concomitant]
     Active Substance: POLYETHYLENE GLYCOL 3350\POTASSIUM CHLORIDE\SODIUM BICARBONATE\SODIUM CHLORIDE
     Indication: Product used for unknown indication
     Dosage: UNK, BID (2X/D)
  36. METFORMIN [Concomitant]
     Active Substance: METFORMIN HYDROCHLORIDE
     Indication: Product used for unknown indication
     Dosage: 1000 MG, QD (1X/D)
  37. CANDESARTAN [Concomitant]
     Active Substance: CANDESARTAN
     Indication: Product used for unknown indication
     Dosage: 32 MG, QD (16 MG, BID (2X1/D) )
  38. TOUJEO [Concomitant]
     Active Substance: INSULIN GLARGINE
     Indication: Product used for unknown indication
     Dosage: UNK (300 36LE/D)
  39. NI LI AN [CANDESARTAN CILEXETIL] [Concomitant]
     Indication: Product used for unknown indication
     Dosage: 16 MG, BID (2X1/D))
     Route: 065
  40. PANTOZAL [Concomitant]
     Indication: Product used for unknown indication
     Dosage: 400 MILLIGRAM, ONCE DAILY (QD)
  41. BARICITINIB [Suspect]
     Active Substance: BARICITINIB
     Indication: Product used for unknown indication
     Dosage: UNK

REACTIONS (2)
  - Diverticulitis intestinal perforated [Not Recovered/Not Resolved]
  - COVID-19 [Unknown]

NARRATIVE: CASE EVENT DATE: 20221127
